FAERS Safety Report 12501593 (Version 1)
Quarter: 2016Q2

REPORT INFORMATION
  Report Type: Spontaneous
  Country: CO (occurrence: CO)
  Receive Date: 20160627
  Receipt Date: 20160627
  Transmission Date: 20160815
  Serious: Yes (Hospitalization)
  Sender: FDA-Public Use
  Company Number: CO-BAXTER-2016BAX032334

PATIENT
  Age: 0 Day
  Sex: Male
  Weight: 2.61 kg

DRUGS (5)
  1. DEXTROSA AL 10% USP [Suspect]
     Active Substance: DEXTROSE
     Indication: HYPOGLYCAEMIA
     Dosage: 5 CC
     Route: 040
     Dates: start: 20160614, end: 20160614
  2. DEXTROSA AL 10% USP [Suspect]
     Active Substance: DEXTROSE
     Route: 042
  3. DEXTROSA AL 10% USP [Suspect]
     Active Substance: DEXTROSE
     Dosage: 9 CC PER HOUR
     Route: 042
     Dates: start: 20160614
  4. GENTAMICIN SULFATE. [Suspect]
     Active Substance: GENTAMICIN SULFATE
     Indication: PRODUCT USED FOR UNKNOWN INDICATION
     Route: 047
     Dates: start: 20160614, end: 20160614
  5. PHYTOMENADIONE [Suspect]
     Active Substance: PHYTONADIONE
     Indication: PRODUCT USED FOR UNKNOWN INDICATION
     Route: 030
     Dates: start: 20160614, end: 20160614

REACTIONS (2)
  - Poor peripheral circulation [Recovered/Resolved]
  - Rash macular [Recovered/Resolved]

NARRATIVE: CASE EVENT DATE: 20160614
